FAERS Safety Report 23481349 (Version 1)
Quarter: 2024Q1

REPORT INFORMATION
  Report Type: Spontaneous
  Country: US (occurrence: None)
  Receive Date: 20240202
  Receipt Date: 20240202
  Transmission Date: 20240410
  Serious: Yes (Other)
  Sender: FDA-Public Use
  Company Number: None

PATIENT
  Age: 67 Year
  Sex: Female
  Weight: 81 kg

DRUGS (1)
  1. ZTLIDO [Suspect]
     Active Substance: LIDOCAINE
     Indication: Product used for unknown indication
     Dosage: 1 PATCH AT BEDTIME  TRANSDERMAL
     Route: 062
     Dates: start: 20240110, end: 20240111

REACTIONS (8)
  - Urticaria [None]
  - Oropharyngeal pain [None]
  - Pharyngeal swelling [None]
  - Paranasal sinus discomfort [None]
  - Ear discomfort [None]
  - Dyspnoea [None]
  - Wheezing [None]
  - Accidental exposure to product [None]

NARRATIVE: CASE EVENT DATE: 20240111
